FAERS Safety Report 8565540-2 (Version None)
Quarter: 2012Q3

REPORT INFORMATION
  Report Type: 
  Country: None (occurrence: None)
  Receive Date: 20120803
  Receipt Date: 20120730
  Transmission Date: 20120928
  Serious: Yes (Hospitalization)
  Sender: FDA-Public Use
  Company Number: DK-JNJFOC-20120513266

PATIENT
  Sex: Female

DRUGS (9)
  1. SPIRIVA [Concomitant]
     Indication: ASTHMA
     Route: 065
  2. TRUXAL [Concomitant]
     Dosage: WHEN NEEDED
     Route: 065
  3. PALIPERIDONE [Suspect]
     Route: 030
     Dates: start: 20120625
  4. PALIPERIDONE [Suspect]
     Indication: SCHIZOPHRENIA
     Route: 030
     Dates: start: 20120510
  5. SYMBICORT [Concomitant]
     Indication: ASTHMA
     Route: 065
  6. LYSANTIN [Concomitant]
     Dosage: 50 MG X 3 WHEN NEEDED
     Route: 065
  7. RISPERIDONE [Concomitant]
     Dosage: AT NIGHT
     Route: 048
  8. RISPERIDONE [Concomitant]
     Route: 048
  9. TERBASMIN TURBUHALER [Concomitant]
     Indication: ASTHMA
     Dosage: WHEN NEEDED
     Route: 065

REACTIONS (13)
  - DIZZINESS [None]
  - MANIA [None]
  - MUSCULOSKELETAL STIFFNESS [None]
  - ANXIETY [None]
  - CONFUSIONAL STATE [None]
  - DRY MOUTH [None]
  - INSOMNIA [None]
  - THINKING ABNORMAL [None]
  - FLATULENCE [None]
  - PAIN [None]
  - VISUAL IMPAIRMENT [None]
  - FATIGUE [None]
  - SPEECH DISORDER [None]
